FAERS Safety Report 21698366 (Version 1)
Quarter: 2022Q4

REPORT INFORMATION
  Report Type: Spontaneous
  Country: JP (occurrence: JP)
  Receive Date: 20221208
  Receipt Date: 20221208
  Transmission Date: 20230113
  Serious: Yes (Other)
  Sender: FDA-Public Use
  Company Number: JP-ASTELLAS-2022JP017740

PATIENT
  Sex: Male

DRUGS (2)
  1. HARNAL [Suspect]
     Active Substance: TAMSULOSIN HYDROCHLORIDE
     Indication: Benign prostatic hyperplasia
     Route: 048
  2. HARNAL [Suspect]
     Active Substance: TAMSULOSIN HYDROCHLORIDE
     Dosage: UNK UNK, ABOUT 3 TABLETS 2 HOURS INTERVALS
     Route: 048

REACTIONS (7)
  - Urinary retention [Recovering/Resolving]
  - Pyrexia [Recovered/Resolved]
  - Spinal stenosis [Unknown]
  - Neuralgia [Unknown]
  - Therapeutic response decreased [Unknown]
  - Intentional overdose [Unknown]
  - Intentional product misuse [Unknown]
